FAERS Safety Report 24165685 (Version 1)
Quarter: 2024Q3

REPORT INFORMATION
  Report Type: Spontaneous
  Country: ZA (occurrence: ZA)
  Receive Date: 20240802
  Receipt Date: 20240802
  Transmission Date: 20241016
  Serious: Yes (Other)
  Sender: AUROBINDO
  Company Number: ZA-AUROBINDO-AUR-APL-2024-037403

PATIENT
  Age: 2 Year
  Sex: Male
  Weight: 10.9 kg

DRUGS (9)
  1. ABACAVIR [Suspect]
     Active Substance: ABACAVIR
     Indication: HIV infection
     Dosage: UNK
     Route: 065
  2. LAMIVUDINE [Suspect]
     Active Substance: LAMIVUDINE
     Indication: HIV infection
     Dosage: 6 MILLILITER, TWO TIMES A DAY
     Route: 065
  3. LOPINAVIR AND RITONAVIR [Suspect]
     Active Substance: LOPINAVIR\RITONAVIR
     Indication: HIV infection
     Dosage: UNK
     Route: 065
  4. ZIDOVUDINE [Suspect]
     Active Substance: ZIDOVUDINE
     Indication: HIV infection
     Dosage: 12 MILLILITER, TWO TIMES A DAY
     Route: 065
  5. RIFAMPIN [Suspect]
     Active Substance: RIFAMPIN
     Indication: Tuberculosis
     Dosage: UNK
     Route: 065
  6. DARUNAVIR [Suspect]
     Active Substance: DARUNAVIR
     Indication: HIV infection
     Dosage: 100 MILLIGRAM PER MILLILETER
     Route: 065
  7. DARUNAVIR [Suspect]
     Active Substance: DARUNAVIR
     Dosage: 200 MILLIGRAM, TWO TIMES A DAY
     Route: 065
  8. DARUNAVIR [Suspect]
     Active Substance: DARUNAVIR
     Dosage: CRUSHED DARUNAVIR 3 ? 75 MG BD
     Route: 065
  9. RITONAVIR [Suspect]
     Active Substance: RITONAVIR
     Indication: HIV infection
     Dosage: 32 MILLIGRAM, TWO TIMES A DAY (0.4 ML)
     Route: 065

REACTIONS (2)
  - Drug ineffective [Unknown]
  - Off label use [Unknown]
